FAERS Safety Report 4772055-6 (Version None)
Quarter: 2005Q3

REPORT INFORMATION
  Report Type: 
  Country: None (occurrence: None)
  Receive Date: 20050918
  Receipt Date: 20050526
  Transmission Date: 20060218
  Serious: Yes (Disabling)
  Sender: FDA-Public Use
  Company Number: US-MERCK-0505USA03248

PATIENT
  Age: 66 Year
  Sex: Male
  Weight: 102 kg

DRUGS (7)
  1. VIOXX [Suspect]
     Indication: ARTHRITIS
     Route: 048
     Dates: start: 20010101, end: 20030201
  2. UNIVASC [Concomitant]
     Route: 065
  3. EXCEDRIN IB [Concomitant]
     Route: 065
  4. LIPITOR [Concomitant]
     Route: 065
  5. NASACORT [Concomitant]
     Route: 065
  6. ZANTAC [Concomitant]
     Route: 065
  7. PREVACID [Concomitant]
     Route: 065

REACTIONS (8)
  - CEREBROVASCULAR ACCIDENT [None]
  - DEPRESSION [None]
  - HERNIA [None]
  - HYPERTENSION [None]
  - SLEEP APNOEA SYNDROME [None]
  - SUICIDE ATTEMPT [None]
  - UPPER LIMB FRACTURE [None]
  - VARICES OESOPHAGEAL [None]
